FAERS Safety Report 8061012-2 (Version None)
Quarter: 2012Q1

REPORT INFORMATION
  Report Type: 
  Country: None (occurrence: None)
  Receive Date: 20120120
  Receipt Date: 20120112
  Transmission Date: 20120608
  Serious: Yes (Other)
  Sender: FDA-Public Use
  Company Number: CHPA2012US001187

PATIENT
  Age: 49 Year
  Sex: Male

DRUGS (1)
  1. THERAFLU COLD AND SORE THROAT [Suspect]
     Indication: NASOPHARYNGITIS
     Dosage: 1 DF, ONCE/SINGLE
     Route: 048
     Dates: start: 20120110, end: 20120110

REACTIONS (4)
  - DRY THROAT [None]
  - CONCOMITANT DISEASE AGGRAVATED [None]
  - SWELLING FACE [None]
  - EYE SWELLING [None]
